FAERS Safety Report 6731260-X (Version None)
Quarter: 2010Q2

REPORT INFORMATION
  Report Type: 
  Country: None (occurrence: None)
  Receive Date: 20100517
  Receipt Date: 20100517
  Transmission Date: 20101027
  Serious: No
  Sender: FDA-Public Use
  Company Number: None

PATIENT
  Age: 30 Year
  Sex: Male
  Weight: 81.6475 kg

DRUGS (1)
  1. HALOPERIDOL [Suspect]
     Dosage: 100MG Q4W IM
     Route: 030

REACTIONS (1)
  - TARDIVE DYSKINESIA [None]
